FAERS Safety Report 4764523-8 (Version None)
Quarter: 2005Q3

REPORT INFORMATION
  Report Type: 
  Country: None (occurrence: None)
  Receive Date: 20050906
  Receipt Date: 20050822
  Transmission Date: 20060218
  Serious: Yes (Hospitalization)
  Sender: FDA-Public Use
  Company Number: USA0508106122

PATIENT
  Age: 56 Year
  Sex: Female

DRUGS (2)
  1. HUMULIN R [Suspect]
     Indication: DIABETES MELLITUS
     Dates: start: 20040101, end: 20040401
  2. HUMALOG [Suspect]
     Indication: DIABETES MELLITUS
     Dates: start: 20040401

REACTIONS (9)
  - ABDOMINAL PAIN UPPER [None]
  - BLOOD GLUCOSE INCREASED [None]
  - CHEST PAIN [None]
  - CORONARY ARTERY SURGERY [None]
  - COUGH [None]
  - INJECTION SITE PAIN [None]
  - PAROSMIA [None]
  - THROAT IRRITATION [None]
  - TOOTH EXTRACTION [None]
